FAERS Safety Report 5952653-4 (Version None)
Quarter: 2008Q4

REPORT INFORMATION
  Report Type: 
  Country: None (occurrence: None)
  Receive Date: 20081030
  Receipt Date: 20080508
  Transmission Date: 20090506
  Serious: Yes (Other)
  Sender: FDA-Public Use
  Company Number: 48225

PATIENT
  Age: 34 Year
  Sex: Male
  Weight: 105 kg

DRUGS (1)
  1. HALOPERIDOL DECANOATE [Suspect]
     Indication: SCHIZOPHRENIA
     Dosage: 100MG Q 4 WEEKS IM
     Route: 030
     Dates: start: 20080507

REACTIONS (1)
  - EXTRAVASATION [None]
